FAERS Safety Report 4656302-7 (Version None)
Quarter: 2005Q2

REPORT INFORMATION
  Report Type: 
  Country: None (occurrence: None)
  Receive Date: 20050509
  Receipt Date: 20050404
  Transmission Date: 20051028
  Serious: No
  Sender: FDA-Public Use
  Company Number: US-GLAXOSMITHKLINE-A0552646A

PATIENT
  Age: 56 Year
  Sex: Female

DRUGS (4)
  1. AVANDAMET [Suspect]
     Dosage: 2MG TWICE PER DAY
     Route: 048
     Dates: start: 20050204
  2. PREMARIN [Concomitant]
  3. PROVERA [Concomitant]
  4. VITAMINS [Concomitant]

REACTIONS (1)
  - UPPER RESPIRATORY TRACT INFECTION [None]
